FAERS Safety Report 25560448 (Version 1)
Quarter: 2025Q3

REPORT INFORMATION
  Report Type: Spontaneous
  Country: US (occurrence: US)
  Receive Date: 20250715
  Receipt Date: 20250715
  Transmission Date: 20251021
  Serious: No
  Sender: NOVO NORDISK
  Company Number: US-NOVOPROD-1425659

PATIENT
  Sex: Male

DRUGS (1)
  1. OZEMPIC [Suspect]
     Active Substance: SEMAGLUTIDE
     Indication: Product used for unknown indication
     Dosage: 0.25 MG, QW
     Route: 058
     Dates: start: 20250416

REACTIONS (5)
  - Weight increased [Unknown]
  - Onychoclasis [Not Recovered/Not Resolved]
  - Injection site haemorrhage [Recovered/Resolved]
  - Product label confusion [Unknown]
  - Wrong technique in product usage process [Unknown]
